FAERS Safety Report 23306036 (Version 1)
Quarter: 2023Q4

REPORT INFORMATION
  Report Type: Spontaneous
  Country: US (occurrence: US)
  Receive Date: 20231218
  Receipt Date: 20231218
  Transmission Date: 20240110
  Serious: No
  Sender: FDA-Public Use
  Company Number: US-CIPLA LTD.-2023US03929

PATIENT

DRUGS (2)
  1. BUDESONIDE [Suspect]
     Active Substance: BUDESONIDE
     Indication: Chronic obstructive pulmonary disease
     Dosage: 0.25 MILLIGRAM, BID (0.25 MILLIGRAM/2 ML, BID FOR THE PAST 6 OR 7 YEARS)
     Route: 055
     Dates: end: 20230702
  2. BUDESONIDE [Suspect]
     Active Substance: BUDESONIDE
     Indication: Asthma

REACTIONS (3)
  - Head discomfort [Unknown]
  - Product use issue [Unknown]
  - Headache [Not Recovered/Not Resolved]

NARRATIVE: CASE EVENT DATE: 20230704
